FAERS Safety Report 9054890 (Version 4)
Quarter: 2014Q1

REPORT INFORMATION
  Report Type: Spontaneous
  Country: US (occurrence: US)
  Receive Date: 20130208
  Receipt Date: 20140210
  Transmission Date: 20141002
  Serious: Yes (Hospitalization, Disabling, Other)
  Sender: FDA-Public Use
  Company Number: US-009507513-1302USA002877

PATIENT
  Sex: Female
  Weight: 81.63 kg

DRUGS (2)
  1. NUVARING [Suspect]
     Indication: MENSTRUAL CYCLE MANAGEMENT
     Dosage: UNK
     Route: 067
     Dates: start: 20110803, end: 20120402
  2. PLAN B [Concomitant]
     Indication: SEXUALLY ACTIVE
     Dosage: UNK
     Dates: start: 20120320

REACTIONS (13)
  - Pulmonary embolism [Unknown]
  - Coagulopathy [Unknown]
  - Off label use [Unknown]
  - Migraine [Unknown]
  - Muscular weakness [Unknown]
  - Abscess soft tissue [Unknown]
  - Back pain [Unknown]
  - Trichomoniasis [Unknown]
  - Oropharyngeal pain [Unknown]
  - Lymphadenopathy [Unknown]
  - Vulvovaginal mycotic infection [Unknown]
  - Metrorrhagia [Recovered/Resolved]
  - Bacterial vaginosis [Unknown]
